FAERS Safety Report 10091590 (Version 1)
Quarter: 2014Q2

REPORT INFORMATION
  Report Type: Spontaneous
  Country: US (occurrence: US)
  Receive Date: 20140421
  Receipt Date: 20140421
  Transmission Date: 20141212
  Serious: No
  Sender: FDA-Public Use
  Company Number: US-GILEAD-2012-0066224

PATIENT
  Age: 52 Year
  Sex: Male

DRUGS (3)
  1. LETAIRIS [Suspect]
     Indication: PULMONARY ARTERIAL HYPERTENSION
     Dosage: 10 MG, QD
     Route: 048
     Dates: start: 20100527
  2. VELETRI [Concomitant]
  3. REVATIO [Concomitant]

REACTIONS (5)
  - Diarrhoea [Unknown]
  - Neuropathy peripheral [Unknown]
  - Rash [Unknown]
  - Nausea [Unknown]
  - Flushing [Unknown]
